FAERS Safety Report 6796303-6 (Version None)
Quarter: 2010Q2

REPORT INFORMATION
  Report Type: 
  Country: None (occurrence: None)
  Receive Date: 20100624
  Receipt Date: 20100624
  Transmission Date: 20101027
  Serious: Yes (Other)
  Sender: FDA-Public Use
  Company Number: None

PATIENT
  Age: 56 Year
  Sex: Female

DRUGS (1)
  1. ESTRING [Suspect]
     Dates: start: 20070501, end: 20091201

REACTIONS (9)
  - C-REACTIVE PROTEIN INCREASED [None]
  - ENDOMETRIAL HYPERTROPHY [None]
  - HEADACHE [None]
  - HEART RATE INCREASED [None]
  - PRODUCT CONTAMINATION [None]
  - PRODUCT QUALITY ISSUE [None]
  - PYREXIA [None]
  - RED BLOOD CELL SEDIMENTATION RATE INCREASED [None]
  - VAGINAL HAEMORRHAGE [None]
